FAERS Safety Report 23635613 (Version 1)
Quarter: 2024Q1

REPORT INFORMATION
  Report Type: Spontaneous
  Country: US (occurrence: US)
  Receive Date: 20240315
  Receipt Date: 20240315
  Transmission Date: 20240410
  Serious: Yes (Other)
  Sender: FDA-Public Use
  Company Number: US-BAUSCHBL-2024BNL003112

PATIENT
  Sex: Female

DRUGS (6)
  1. TIMOLOL [Suspect]
     Active Substance: TIMOLOL
     Indication: Glaucoma
     Route: 065
  2. TIMOLOL [Suspect]
     Active Substance: TIMOLOL
  3. LATANOPROST [Suspect]
     Active Substance: LATANOPROST
     Indication: Glaucoma
     Route: 065
  4. BRIMONIDINE [Suspect]
     Active Substance: BRIMONIDINE TARTRATE
     Indication: Glaucoma
     Route: 065
  5. METHAZOLAMIDE [Suspect]
     Active Substance: METHAZOLAMIDE
     Indication: Product used for unknown indication
     Route: 065
  6. NETARSUDIL [Suspect]
     Active Substance: NETARSUDIL
     Indication: Glaucoma
     Route: 065

REACTIONS (2)
  - Stevens-Johnson syndrome [Unknown]
  - Therapy non-responder [Unknown]
